FAERS Safety Report 8118552-7 (Version None)
Quarter: 2012Q1

REPORT INFORMATION
  Report Type: 
  Country: None (occurrence: None)
  Receive Date: 20120202
  Receipt Date: 20120119
  Transmission Date: 20120608
  Serious: Yes (Death, Hospitalization, Other)
  Sender: FDA-Public Use
  Company Number: 2012MA000939

PATIENT
  Sex: Female
  Weight: 68.0396 kg

DRUGS (22)
  1. MORPHINE [Concomitant]
  2. MIRALAX [Concomitant]
  3. COUMADIN [Concomitant]
  4. OMICEF [Concomitant]
  5. PHENERGAN [Concomitant]
  6. MEGACE [Concomitant]
  7. CIPROFLOXACIN [Concomitant]
  8. FOSAMAX [Concomitant]
  9. MORPHINE SULFATE [Concomitant]
  10. GUAIFENESIN [Concomitant]
  11. PRIMACOR [Concomitant]
  12. EVISTA [Concomitant]
  13. SEROQUEL [Concomitant]
  14. DIGOXIN [Suspect]
     Dosage: 0.25 MG; QD; PO
     Route: 048
     Dates: start: 20070110, end: 20070417
  15. DYAZIDE [Concomitant]
  16. ZOMETA [Concomitant]
  17. PROCRIT [Concomitant]
  18. DURAGESIC-100 [Concomitant]
  19. ATIVAN [Concomitant]
  20. PROTONIX [Concomitant]
  21. PREDNISOLONE [Concomitant]
  22. MS CONTIN [Concomitant]

REACTIONS (23)
  - MULTIPLE MYELOMA [None]
  - VOMITING [None]
  - CONFUSIONAL STATE [None]
  - HYPOMAGNESAEMIA [None]
  - CHEST PAIN [None]
  - DUODENITIS [None]
  - ANAEMIA [None]
  - DECREASED APPETITE [None]
  - NAUSEA [None]
  - OEDEMA PERIPHERAL [None]
  - DEHYDRATION [None]
  - PNEUMONIA [None]
  - HERPES ZOSTER [None]
  - ARTHRITIS [None]
  - ABDOMINAL PAIN [None]
  - URINARY TRACT INFECTION [None]
  - ATRIAL FIBRILLATION [None]
  - TOXICITY TO VARIOUS AGENTS [None]
  - DIARRHOEA [None]
  - BLOOD CALCIUM ABNORMAL [None]
  - MUSCULOSKELETAL CHEST PAIN [None]
  - COLITIS [None]
  - HYPOKALAEMIA [None]
